FAERS Safety Report 4851969-2 (Version None)
Quarter: 2005Q4

REPORT INFORMATION
  Report Type: 
  Country: None (occurrence: None)
  Receive Date: 20051209
  Receipt Date: 20041105
  Transmission Date: 20060501
  Serious: Yes (Other)
  Sender: FDA-Public Use
  Company Number: 2004089173

PATIENT
  Age: 45 Year
  Sex: Male
  Weight: 95.2554 kg

DRUGS (1)
  1. SUDAFED 12 HOUR [Suspect]
     Indication: NASOPHARYNGITIS
     Dosage: ONE CAPLET ONCE, ORAL
     Route: 048
     Dates: start: 20041105, end: 20041105

REACTIONS (3)
  - DEPRESSED LEVEL OF CONSCIOUSNESS [None]
  - DIZZINESS [None]
  - LOSS OF CONSCIOUSNESS [None]
